FAERS Safety Report 17869932 (Version 4)
Quarter: 2021Q2

REPORT INFORMATION
  Report Type: Spontaneous
  Country: DE (occurrence: DE)
  Receive Date: 20200608
  Receipt Date: 20210601
  Transmission Date: 20210717
  Serious: Yes (Hospitalization, Other)
  Sender: FDA-Public Use
  Company Number: DE-ACCORD-184434

PATIENT
  Age: 63 Year
  Sex: Female

DRUGS (20)
  1. JANUMET [Concomitant]
     Active Substance: METFORMIN HYDROCHLORIDE\SITAGLIPTIN PHOSPHATE
     Dosage: STRENGTH? 50MG/1000MG
     Route: 048
  2. RAMIPRIL. [Concomitant]
     Active Substance: RAMIPRIL
     Dosage: STRENGTH? 2.5 MG, 1?0?0?0
  3. SPIRIVA [Concomitant]
     Active Substance: TIOTROPIUM BROMIDE MONOHYDRATE
     Dosage: STRENGTH?18 MICROGRAMS, 1?0?0?0
     Route: 055
  4. MAGALDRATE [Concomitant]
     Active Substance: MAGALDRATE
     Dosage: 1600 MG, 0?0?1?0, SYRUP
     Route: 048
  5. CLOPIDOGREL [Suspect]
     Active Substance: CLOPIDOGREL BISULFATE
     Indication: PRODUCT USED FOR UNKNOWN INDICATION
     Dosage: STRENGTH?75 MG, 1?0?0?0
  6. ASS 100 [Suspect]
     Active Substance: ASPIRIN
     Indication: PRODUCT USED FOR UNKNOWN INDICATION
     Dosage: STRENGTH?100 MG, 0?1?0?0
  7. FOLIC ACID. [Concomitant]
     Active Substance: FOLIC ACID
     Dosage: STRENGTH?5 MG / WEEK, 1XMI
  8. RIOPAN [Concomitant]
     Dosage: 0?0?1?0, GEL
  9. METHOTREXATE. [Suspect]
     Active Substance: METHOTREXATE
     Indication: PRODUCT USED FOR UNKNOWN INDICATION
     Dosage: STRENGTH?10 MG / WEEK, 1XDI,
     Route: 048
  10. ACTRAPID [Concomitant]
     Active Substance: INSULIN HUMAN
     Dosage: ACCORDING TO BZ, STRENGTH: 100IU / ML PRE?FILLED PEN
  11. VIANI FORTE [Concomitant]
     Active Substance: FLUTICASONE PROPIONATE\SALMETEROL XINAFOATE
     Dosage: 50 MICROGRAM / 500 MICROGRAM DISKUS, 1?0?1?0, METERED DOSE INHALER
     Route: 055
  12. ATORVASTATIN [Concomitant]
     Active Substance: ATORVASTATIN
     Dosage: STRENGTH?40 MG, 0?0?1?0, 60 MG, 0?0?1?0, TABLET
  13. CLOPIDOGREL [Concomitant]
     Active Substance: CLOPIDOGREL BISULFATE
     Dosage: 75 MG, 1?0?0?0
  14. NALOXONE HYDROCHLORIDE/TILIDINE HYDROCHLORIDE [Suspect]
     Active Substance: NALOXONE HYDROCHLORIDE\TILIDINE HYDROCHLORIDE
     Indication: PRODUCT USED FOR UNKNOWN INDICATION
  15. LANTUS [Concomitant]
     Active Substance: INSULIN GLARGINE
     Dosage: STRENGTH?24 IE, 0?1?0?0,
     Route: 058
  16. ESOMEPRAZOLE/ESOMEPRAZOLE MAGNESIUM/ESOMEPRAZOLE SODIUM [Concomitant]
     Active Substance: ESOMEPRAZOLE
     Dosage: 20 MG, 1?0?0?0
  17. TIOTROPIUM [Concomitant]
     Active Substance: TIOTROPIUM
     Dosage: 18 UG, 1?0?0?0, CAPSULE
     Route: 055
  18. PANTOPRAZOLE [Concomitant]
     Active Substance: PANTOPRAZOLE
     Dosage: STRENGTH? 40 MG, 1?0?1?0
  19. ALLOPURINOL. [Concomitant]
     Active Substance: ALLOPURINOL
     Dosage: STRENGTH?300 MG, 0.5?0?0?0
  20. METAMIZOLE SODIUM [Concomitant]
     Active Substance: METAMIZOLE SODIUM
     Dosage: 500 MG, 1?1?1?1, TABLET
     Route: 048

REACTIONS (19)
  - Liver function test abnormal [Unknown]
  - Gastritis erosive [Unknown]
  - Product prescribing error [Unknown]
  - Dizziness [Unknown]
  - Medication error [Unknown]
  - Circulatory collapse [Unknown]
  - Hepatic failure [Unknown]
  - Duodenal ulcer [Unknown]
  - White blood cell count decreased [Unknown]
  - Anaemia [Unknown]
  - General physical health deterioration [Unknown]
  - Anaemia macrocytic [Unknown]
  - Abdominal pain upper [Unknown]
  - Nausea [Recovered/Resolved]
  - Vomiting [Recovered/Resolved]
  - Liver function test increased [Unknown]
  - Contusion [Unknown]
  - Abdominal pain [Recovered/Resolved]
  - Weight decreased [Unknown]
